FAERS Safety Report 16393151 (Version 4)
Quarter: 2019Q3

REPORT INFORMATION
  Report Type: Report from Study
  Country: CA (occurrence: CA)
  Receive Date: 20190605
  Receipt Date: 20190715
  Transmission Date: 20191004
  Serious: Yes (Life-Threatening, Hospitalization)
  Sender: FDA-Public Use
  Company Number: CA-AMGEN-CANSL2019086392

PATIENT
  Age: 75 Year
  Sex: Female

DRUGS (2)
  1. CALCIUM [Concomitant]
     Active Substance: CALCIUM
     Dosage: UNK
  2. PROLIA [Suspect]
     Active Substance: DENOSUMAB
     Indication: OSTEOPOROSIS POSTMENOPAUSAL
     Dosage: 60 MILLIGRAM PER MILLILITRE
     Route: 065
     Dates: start: 201811

REACTIONS (5)
  - Blood potassium decreased [Unknown]
  - Blood calcium decreased [Unknown]
  - Hypertension [Unknown]
  - Malaise [Unknown]
  - Weight decreased [Unknown]
